FAERS Safety Report 7674581-9 (Version None)
Quarter: 2011Q3

REPORT INFORMATION
  Report Type: 
  Country: None (occurrence: None)
  Receive Date: 20110810
  Receipt Date: 20110728
  Transmission Date: 20111222
  Serious: Yes (Other)
  Sender: FDA-Public Use
  Company Number: PHHY2011BR68205

PATIENT
  Age: 82 Year
  Sex: Female

DRUGS (1)
  1. FORMOTEROL FUMARATE [Suspect]

REACTIONS (3)
  - DEVICE MALFUNCTION [None]
  - CARDIAC DISORDER [None]
  - DIABETES MELLITUS [None]
